FAERS Safety Report 9045922 (Version 1)
Quarter: 2013Q1

REPORT INFORMATION
  Report Type: Report from Study
  Country: US (occurrence: US)
  Receive Date: 20130201
  Receipt Date: 20130201
  Transmission Date: 20140127
  Serious: No
  Sender: FDA-Public Use
  Company Number: US-ABBOTT-12P-163-1019560-00

PATIENT
  Age: 25 None
  Sex: Female
  Weight: 77.18 kg

DRUGS (14)
  1. HUMIRA [Suspect]
     Indication: COLITIS ULCERATIVE
     Route: 058
     Dates: start: 20121109, end: 20121109
  2. HUMIRA [Suspect]
     Route: 058
     Dates: start: 20121123, end: 20121123
  3. HUMIRA [Suspect]
     Route: 058
     Dates: start: 20121207
  4. AMBIEN [Suspect]
     Indication: INSOMNIA
     Dates: start: 201211, end: 201211
  5. SEROQUEL [Suspect]
     Indication: INSOMNIA
  6. ALBUTEROL [Concomitant]
     Indication: ASTHMA
     Dosage: INHALER/NEBULIZER
  7. PROTONIX [Concomitant]
     Indication: GASTROOESOPHAGEAL REFLUX DISEASE
     Dosage: 1 TABLET DAILY
  8. VITAMINS [Concomitant]
     Indication: ROUTINE HEALTH MAINTENANCE
     Dosage: DAILY
  9. ASACOL [Concomitant]
     Indication: COLITIS ULCERATIVE
  10. MESALAMINE [Concomitant]
     Indication: ANALGESIC THERAPY
  11. BENADRYL [Concomitant]
     Indication: INSOMNIA
     Dosage: 2 AT BEDTIME FOR SLEEP
  12. LOMOTIL [Concomitant]
     Indication: DIARRHOEA
  13. PHENERGEN [Concomitant]
     Indication: NAUSEA
  14. XANAX [Concomitant]
     Indication: FAECAL INCONTINENCE

REACTIONS (5)
  - Joint stiffness [Not Recovered/Not Resolved]
  - Injection site pain [Not Recovered/Not Resolved]
  - Headache [Not Recovered/Not Resolved]
  - Headache [Not Recovered/Not Resolved]
  - Heart rate increased [Recovering/Resolving]
